FAERS Safety Report 4849497-3 (Version None)
Quarter: 2005Q4

REPORT INFORMATION
  Report Type: 
  Country: None (occurrence: None)
  Receive Date: 20051207
  Receipt Date: 20051129
  Transmission Date: 20060501
  Serious: Yes (Life-Threatening)
  Sender: FDA-Public Use
  Company Number: 2005162245

PATIENT
  Sex: Female
  Weight: 60.3 kg

DRUGS (2)
  1. LYRICA [Suspect]
     Indication: DIABETIC NEUROPATHY
     Dosage: 150 MG (75 MG, 2 IN 1 D), ORAL
     Route: 048
     Dates: start: 20051004, end: 20051006
  2. INSULIN [Concomitant]

REACTIONS (5)
  - ABDOMINAL PAIN UPPER [None]
  - FEELING ABNORMAL [None]
  - FEELING DRUNK [None]
  - HEADACHE [None]
  - ROAD TRAFFIC ACCIDENT [None]
